FAERS Safety Report 10833995 (Version 1)
Quarter: 2015Q1

REPORT INFORMATION
  Report Type: Report from Study
  Country: US (occurrence: US)
  Receive Date: 20150219
  Receipt Date: 20150219
  Transmission Date: 20150721
  Serious: No
  Sender: FDA-Public Use
  Company Number: US-ABBVIE-14P-163-1202670-00

PATIENT
  Age: 37 Year
  Sex: Female

DRUGS (4)
  1. LEVOTHYROXINE [Concomitant]
     Active Substance: LEVOTHYROXINE
     Indication: HYPOTHYROIDISM
  2. HUMIRA [Suspect]
     Active Substance: ADALIMUMAB
     Indication: CROHN^S DISEASE
  3. PREDNISONE. [Concomitant]
     Active Substance: PREDNISONE
     Indication: COLITIS ULCERATIVE
  4. HUMIRA [Suspect]
     Active Substance: ADALIMUMAB
     Indication: RHEUMATOID ARTHRITIS
     Route: 050
     Dates: start: 20131202

REACTIONS (6)
  - Cough [Not Recovered/Not Resolved]
  - Diarrhoea haemorrhagic [Not Recovered/Not Resolved]
  - Incorrect dose administered [Unknown]
  - Rhinorrhoea [Not Recovered/Not Resolved]
  - Diarrhoea [Not Recovered/Not Resolved]
  - Device issue [Unknown]

NARRATIVE: CASE EVENT DATE: 20140206
